FAERS Safety Report 14215975 (Version 1)
Quarter: 2017Q4

REPORT INFORMATION
  Report Type: Spontaneous
  Country: US (occurrence: US)
  Receive Date: 20171122
  Receipt Date: 20171122
  Transmission Date: 20180321
  Serious: No
  Sender: FDA-Public Use
  Company Number: US-009507513-1711USA005743

PATIENT
  Sex: Male

DRUGS (1)
  1. ASMANEX [Suspect]
     Active Substance: MOMETASONE FUROATE
     Dosage: 1 PUFF, DAILY
     Route: 048

REACTIONS (4)
  - Product quality issue [Unknown]
  - Circumstance or information capable of leading to medication error [Unknown]
  - No adverse event [Unknown]
  - Incorrect dose administered [Unknown]
